FAERS Safety Report 17121109 (Version 1)
Quarter: 2019Q4

REPORT INFORMATION
  Report Type: Spontaneous
  Country: US (occurrence: US)
  Receive Date: 20191206
  Receipt Date: 20191206
  Transmission Date: 20200122
  Serious: No
  Sender: FDA-Public Use
  Company Number: US-UCBSA-2017022885

PATIENT
  Sex: Female

DRUGS (1)
  1. VIMPAT [Suspect]
     Active Substance: LACOSAMIDE
     Indication: PRODUCT USED FOR UNKNOWN INDICATION
     Dosage: UNK

REACTIONS (7)
  - Diplopia [Unknown]
  - Dizziness [Unknown]
  - Ataxia [Unknown]
  - Confusional state [Unknown]
  - Adverse drug reaction [Unknown]
  - Fatigue [Unknown]
  - Somnolence [Unknown]
